FAERS Safety Report 8027479-0 (Version None)
Quarter: 2011Q4

REPORT INFORMATION
  Report Type: 
  Country: None (occurrence: None)
  Receive Date: 20111130
  Receipt Date: 20110815
  Transmission Date: 20120403
  Serious: Yes (Hospitalization, Other)
  Sender: FDA-Public Use
  Company Number: US201108004577

PATIENT
  Age: 44 Year
  Sex: Male
  Weight: 117.9 kg

DRUGS (4)
  1. GLUCOPHAGE [Concomitant]
  2. PROTONIX [Concomitant]
  3. ASACOL [Concomitant]
  4. BYETTA [Suspect]
     Dosage: 5 UG, BID
     Dates: start: 20060610, end: 20080801

REACTIONS (1)
  - PANCREATITIS [None]
